FAERS Safety Report 19025930 (Version 1)
Quarter: 2021Q1

REPORT INFORMATION
  Report Type: Spontaneous
  Country: US (occurrence: US)
  Receive Date: 20210316
  Receipt Date: 20210316
  Transmission Date: 20210420
  Serious: Yes (Hospitalization)
  Sender: FDA-Public Use
  Company Number: None

PATIENT
  Age: 43 Year
  Sex: Female

DRUGS (6)
  1. AZITHROMYCIN ANHYDROUS. [Suspect]
     Active Substance: AZITHROMYCIN ANHYDROUS
  2. GABAPENTIN. [Suspect]
     Active Substance: GABAPENTIN
  3. IPRATROPIUM/SOL ALBUTER [Concomitant]
  4. GLATIRAMER 40MG/ML SYR [Suspect]
     Active Substance: GLATIRAMER
     Indication: MULTIPLE SCLEROSIS
     Dosage: DOSE: 1 SYR
     Route: 058
     Dates: start: 20190201
  5. MOVE FREE JOINT [Concomitant]
  6. IBUPROFEN. [Suspect]
     Active Substance: IBUPROFEN

REACTIONS (4)
  - Therapy interrupted [None]
  - Breast pain [None]
  - Neuralgia [None]
  - Palpitations [None]

NARRATIVE: CASE EVENT DATE: 20210316
